FAERS Safety Report 9081622 (Version 1)
Quarter: 2013Q1

REPORT INFORMATION
  Report Type: Spontaneous
  Country: US (occurrence: US)
  Receive Date: 20130218
  Receipt Date: 20130218
  Transmission Date: 20140127
  Serious: No
  Sender: FDA-Public Use
  Company Number: US-PFIZER INC-2013061016

PATIENT
  Age: 66 Year
  Sex: Male
  Weight: 77 kg

DRUGS (4)
  1. ADVIL [Suspect]
     Indication: BACK PAIN
     Dosage: UNK, AS NEEDED
  2. AMLODIPINE [Concomitant]
     Indication: HYPERTENSION
     Dosage: UNK, 2X/DAY
  3. QUINAPRIL [Concomitant]
     Indication: HYPERTENSION
     Dosage: 80 MG, 2X/DAY
  4. JANUVIA [Concomitant]
     Indication: TYPE 2 DIABETES MELLITUS
     Dosage: 100 MG, DAILY

REACTIONS (1)
  - Blood glucose increased [Recovering/Resolving]
